FAERS Safety Report 10884896 (Version 1)
Quarter: 2015Q1

REPORT INFORMATION
  Report Type: Spontaneous
  Country: US (occurrence: US)
  Receive Date: 20150304
  Receipt Date: 20150304
  Transmission Date: 20150721
  Serious: No
  Sender: FDA-Public Use
  Company Number: US-TEVA-481613USA

PATIENT
  Sex: Male

DRUGS (1)
  1. AMOXICILLIN. [Suspect]
     Active Substance: AMOXICILLIN
     Dosage: 400/5ML

REACTIONS (4)
  - Vomiting [Unknown]
  - Abdominal pain [Unknown]
  - Pain in extremity [Unknown]
  - Painful defaecation [Unknown]
